FAERS Safety Report 23305175 (Version 1)
Quarter: 2023Q4

REPORT INFORMATION
  Report Type: Spontaneous
  Country: ES (occurrence: ES)
  Receive Date: 20231218
  Receipt Date: 20231218
  Transmission Date: 20240110
  Serious: Yes (Hospitalization, Other)
  Sender: FDA-Public Use
  Company Number: ES-AEMPS-1458193

PATIENT
  Age: 91 Year
  Sex: Male
  Weight: 63 kg

DRUGS (3)
  1. FUROSEMIDE [Interacting]
     Active Substance: FUROSEMIDE
     Indication: Cardiac failure
     Dosage: 120 MILLIGRAM, ONCE A DAY (AS A CONTINUOUS INFUSION)
     Route: 042
     Dates: start: 20231005, end: 20231018
  2. CHLORTHALIDONE [Interacting]
     Active Substance: CHLORTHALIDONE
     Indication: Cardiac failure
     Dosage: 25 MILLIGRAM (EVERY 48 HOURS)
     Route: 048
     Dates: start: 20231005, end: 20231018
  3. ACETAZOLAMIDE [Interacting]
     Active Substance: ACETAZOLAMIDE
     Indication: Cardiac failure
     Dosage: 500 MILLIGRAM, EVERY WEEK (ON MONDAYS AND THURSDAYS)
     Route: 048
     Dates: start: 20231005, end: 20231018

REACTIONS (3)
  - Acute kidney injury [Recovered/Resolved]
  - Hyponatraemia [Recovered/Resolved]
  - Neurological decompensation [Recovered/Resolved]

NARRATIVE: CASE EVENT DATE: 20231018
